FAERS Safety Report 13080460 (Version 2)
Quarter: 2017Q1

REPORT INFORMATION
  Report Type: Report from Study
  Country: CA (occurrence: CA)
  Receive Date: 20170103
  Receipt Date: 20170105
  Transmission Date: 20170428
  Serious: Yes (Other)
  Sender: FDA-Public Use
  Company Number: CA-JNJFOC-20161224324

PATIENT
  Age: 40 Year
  Sex: Male
  Weight: 83.92 kg

DRUGS (2)
  1. STELARA [Suspect]
     Active Substance: USTEKINUMAB
     Indication: PSORIASIS
     Dosage: 0,4,16,28 WEEKS
     Route: 058
     Dates: start: 20161219
  2. STELARA [Suspect]
     Active Substance: USTEKINUMAB
     Indication: PSORIASIS
     Dosage: 0,4,16,28 WEEKS
     Route: 058
     Dates: start: 20161219

REACTIONS (4)
  - Hand-foot-and-mouth disease [Recovering/Resolving]
  - Off label use [Unknown]
  - Inappropriate schedule of drug administration [Unknown]
  - Skin ulcer haemorrhage [Recovering/Resolving]

NARRATIVE: CASE EVENT DATE: 20161219
